FAERS Safety Report 6419809-8 (Version None)
Quarter: 2009Q4

REPORT INFORMATION
  Report Type: 
  Country: None (occurrence: None)
  Receive Date: 20091013
  Receipt Date: 20081003
  Transmission Date: 20100525
  Serious: Yes (Other)
  Sender: FDA-Public Use
  Company Number: 08-069

PATIENT
  Sex: Male

DRUGS (2)
  1. BUTALBITAL ACETAMINOPHEN CAFFEINE [Suspect]
     Indication: MIGRAINE
     Dosage: 1 TO 2, 6 HRS AS NEEDED
     Dates: start: 20080922, end: 20080929
  2. PRILOSEC [Concomitant]

REACTIONS (1)
  - GINGIVITIS [None]
